FAERS Safety Report 8317626 (Version 4)
Quarter: 2012Q4

REPORT INFORMATION
  Report Type: Report from Study
  Country: PE (occurrence: PE)
  Receive Date: 20120102
  Receipt Date: 20121022
  Transmission Date: 20130627
  Serious: Yes (Hospitalization, Other)
  Sender: FDA-Public Use
  Company Number: PE-BRISTOL-MYERS SQUIBB COMPANY-15983224

PATIENT
  Age: 74 Year
  Sex: Male

DRUGS (9)
  1. BLINDED: SAXAGLIPTIN [Suspect]
     Indication: TYPE 2 DIABETES MELLITUS
     Dosage: Interrupted on 13Aug2011,restat on 29Aug11,inter on 18Nov11,restat on 07Dec11
1df=2.5mg or 5mg
     Dates: start: 20100903
  2. METFORMIN HCL [Suspect]
     Indication: DIABETES MELLITUS
     Dates: end: 20100923
  3. GLIMEPIRIDE [Suspect]
     Indication: DIABETES MELLITUS
     Dosage: end date 01feb11 2 mg.4 mg: 02Feb11-16AUG11.16aUG11-UNK
     Dates: start: 20110202
  4. BLINDED: PLACEBO [Suspect]
     Indication: TYPE 2 DIABETES MELLITUS
     Dosage: Interrupted on 13Aug2011,restat on 29Aug11,inter on 18Nov11,restat on 07Dec11
     Dates: start: 20100903
  5. VELCADE [Suspect]
     Indication: PLASMACYTOMA
  6. ASPIRIN [Concomitant]
     Dosage: Also taken on 02Sep10, 22Mar11.
     Dates: start: 20101123
  7. ALLOPURINOL [Concomitant]
     Indication: HYPERURICAEMIA
     Route: 048
  8. IRON [Concomitant]
     Indication: IRON DEFICIENCY ANAEMIA
     Route: 048
     Dates: start: 20120514
  9. VITAMIN B12 [Concomitant]
     Indication: IRON DEFICIENCY ANAEMIA
     Route: 048
     Dates: start: 20120514

REACTIONS (2)
  - Deep vein thrombosis [Recovered/Resolved]
  - Oesophageal candidiasis [Recovered/Resolved]
